FAERS Safety Report 8552367-0 (Version None)
Quarter: 2012Q3

REPORT INFORMATION
  Report Type: 
  Country: None (occurrence: None)
  Receive Date: 20120723
  Receipt Date: 20120723
  Transmission Date: 20120928
  Serious: Yes (Hospitalization)
  Sender: FDA-Public Use
  Company Number: None

PATIENT
  Sex: Male
  Weight: 54 kg

DRUGS (3)
  1. DEXAMETHASONE [Suspect]
     Dosage: 135 MG
  2. METHOTREXATE [Suspect]
     Dosage: 270 MG
  3. MERCAPTOPURINE [Suspect]
     Dosage: 8000 MG

REACTIONS (12)
  - FEBRILE NEUTROPENIA [None]
  - TACHYPNOEA [None]
  - WHITE BLOOD CELL COUNT DECREASED [None]
  - ANAEMIA [None]
  - RESPIRATORY FAILURE [None]
  - OROPHARYNGEAL PAIN [None]
  - COUGH [None]
  - PYREXIA [None]
  - FATIGUE [None]
  - PNEUMONIA [None]
  - OXYGEN SATURATION DECREASED [None]
  - CHILLS [None]
